FAERS Safety Report 12147875 (Version 3)
Quarter: 2016Q1

REPORT INFORMATION
  Report Type: Spontaneous
  Country: GB (occurrence: GB)
  Receive Date: 20160304
  Receipt Date: 20160314
  Transmission Date: 20160526
  Serious: Yes (Other)
  Sender: FDA-Public Use
  Company Number: GB-ABBVIE-16P-167-1574521-00

PATIENT
  Age: 70 Year
  Sex: Female

DRUGS (1)
  1. EPILIM [Suspect]
     Active Substance: VALPROATE SODIUM
     Indication: EPILEPSY
     Dosage: 400MG/MORNING, 1200 MG/NIGHT
     Route: 048
     Dates: start: 1970

REACTIONS (12)
  - Alopecia [Unknown]
  - Lip dry [Unknown]
  - Altered state of consciousness [Unknown]
  - Epilepsy [Unknown]
  - Glossitis [Unknown]
  - Tremor [Unknown]
  - Hot flush [Unknown]
  - Contusion [Unknown]
  - Hypersomnia [Unknown]
  - Urticaria [Unknown]
  - Thinking abnormal [Unknown]
  - Memory impairment [Unknown]

NARRATIVE: CASE EVENT DATE: 20160205
